FAERS Safety Report 15114774 (Version 1)
Quarter: 2018Q3

REPORT INFORMATION
  Report Type: Spontaneous
  Country: FR (occurrence: FR)
  Receive Date: 20180706
  Receipt Date: 20180706
  Transmission Date: 20181010
  Serious: Yes (Hospitalization)
  Sender: FDA-Public Use
  Company Number: FR-SA-2018SA170848

PATIENT
  Age: 62 Year
  Sex: Female
  Weight: 67 kg

DRUGS (2)
  1. LOVENOX [Suspect]
     Active Substance: ENOXAPARIN SODIUM
     Indication: PERIPHERAL ISCHAEMIA
     Dosage: UNK, UNK
     Route: 058
     Dates: start: 20180418, end: 20180420
  2. KARDEGIC [Suspect]
     Active Substance: ASPIRIN DL-LYSINE
     Indication: PERIPHERAL ARTERIAL OCCLUSIVE DISEASE
     Dosage: 1 DF, QD
     Route: 048
     Dates: start: 201710, end: 20180418

REACTIONS (2)
  - Haemorrhagic stroke [Recovering/Resolving]
  - Intracranial mass [Recovering/Resolving]

NARRATIVE: CASE EVENT DATE: 20180420
